FAERS Safety Report 11701176 (Version 2)
Quarter: 2015Q4

REPORT INFORMATION
  Report Type: Spontaneous
  Country: JP (occurrence: JP)
  Receive Date: 20151105
  Receipt Date: 20151130
  Transmission Date: 20160304
  Serious: Yes (Hospitalization, Other)
  Sender: FDA-Public Use
  Company Number: JP-SA-2015SA172997

PATIENT
  Age: 61 Year
  Sex: Male
  Weight: 45 kg

DRUGS (23)
  1. 5-FU [Suspect]
     Active Substance: FLUOROURACIL
     Indication: PANCREATIC CARCINOMA
     Route: 040
     Dates: start: 20151013, end: 20151013
  2. GRANISETRON [Concomitant]
     Active Substance: GRANISETRON
     Dates: start: 20150929, end: 20151013
  3. NOVAMIN [Concomitant]
     Active Substance: PROCHLORPERAZINE MALEATE
     Dates: start: 20150929
  4. CONTOMIN [Concomitant]
     Active Substance: CHLORPROMAZINE
     Dates: start: 20151013
  5. DECADRON [Concomitant]
     Active Substance: DEXAMETHASONE
     Dates: start: 20150930, end: 20151015
  6. MAGLAX [Concomitant]
     Active Substance: MAGNESIUM OXIDE
     Dates: start: 20150415
  7. ELPLAT [Suspect]
     Active Substance: OXALIPLATIN
     Indication: PANCREATIC CARCINOMA
     Route: 041
     Dates: start: 20151013, end: 20151013
  8. LEVOFOLINATE [Suspect]
     Active Substance: LEVOLEUCOVORIN CALCIUM
     Indication: PANCREATIC CARCINOMA
     Route: 041
     Dates: start: 20151013, end: 20151013
  9. EMEND [Concomitant]
     Active Substance: APREPITANT
     Dates: start: 20150929, end: 20151015
  10. IRINOTECAN HYDROCHLORIDE. [Suspect]
     Active Substance: IRINOTECAN HYDROCHLORIDE
     Indication: PANCREATIC CARCINOMA
     Route: 041
     Dates: start: 20150909, end: 20150909
  11. 5-FU [Suspect]
     Active Substance: FLUOROURACIL
     Indication: PANCREATIC CARCINOMA
     Route: 041
     Dates: start: 20150909, end: 20150909
  12. LEVOFOLINATE [Suspect]
     Active Substance: LEVOLEUCOVORIN CALCIUM
     Indication: PANCREATIC CARCINOMA
     Route: 041
     Dates: start: 20150909, end: 20150909
  13. LOXOPROFEN [Concomitant]
     Active Substance: LOXOPROFEN
     Dates: start: 20150415
  14. OXINORM [Concomitant]
     Active Substance: OXYCODONE HYDROCHLORIDE
     Dosage: POWDER
     Dates: start: 20150430
  15. 5-FU [Suspect]
     Active Substance: FLUOROURACIL
     Indication: PANCREATIC CARCINOMA
     Route: 040
     Dates: start: 20150909, end: 20150909
  16. ELPLAT [Suspect]
     Active Substance: OXALIPLATIN
     Indication: PANCREATIC CARCINOMA
     Route: 041
     Dates: start: 20150909, end: 20150909
  17. 5-FU [Suspect]
     Active Substance: FLUOROURACIL
     Indication: PANCREATIC CARCINOMA
     Route: 041
     Dates: start: 20151013, end: 20151013
  18. SENNOSIDE [Concomitant]
     Active Substance: SENNOSIDES
     Dates: start: 20150415
  19. OXYCONTIN [Concomitant]
     Active Substance: OXYCODONE HYDROCHLORIDE
     Dates: start: 20150929
  20. HERBAL EXTRACT NOS [Concomitant]
     Active Substance: HERBALS
     Dosage: GRANULE
     Dates: start: 20150930
  21. IRINOTECAN HYDROCHLORIDE. [Suspect]
     Active Substance: IRINOTECAN HYDROCHLORIDE
     Indication: PANCREATIC CARCINOMA
     Route: 041
     Dates: start: 20151013, end: 20151013
  22. DEXART [Concomitant]
     Active Substance: DEXAMETHASONE SODIUM PHOSPHATE
     Dates: start: 20150929, end: 20151013
  23. NEXIUM [Concomitant]
     Active Substance: ESOMEPRAZOLE MAGNESIUM
     Dates: start: 20150415

REACTIONS (3)
  - Eosinophil count increased [Unknown]
  - Neutrophil count decreased [Recovered/Resolved]
  - Hiccups [Unknown]

NARRATIVE: CASE EVENT DATE: 20151013
